FAERS Safety Report 5737725-1 (Version None)
Quarter: 2008Q2

REPORT INFORMATION
  Report Type: 
  Country: None (occurrence: None)
  Receive Date: 20080514
  Receipt Date: 20080506
  Transmission Date: 20081010
  Serious: Yes (Other)
  Sender: FDA-Public Use
  Company Number: B0359785A

PATIENT
  Age: 42 Year
  Sex: Male

DRUGS (13)
  1. SEROXAT [Suspect]
     Route: 065
     Dates: start: 19981202
  2. DIAZEPAM [Concomitant]
     Indication: ANXIETY
     Route: 065
     Dates: start: 20001002, end: 20050101
  3. TRAMADOL HCL [Concomitant]
     Indication: BACK PAIN
  4. GABAPENTIN [Concomitant]
     Indication: BACK PAIN
  5. MEBEVERINE [Concomitant]
  6. OMEPRAZOLE [Concomitant]
  7. ALFUZOSIN HCL [Concomitant]
  8. AMITRIPTYLINE HCL [Concomitant]
     Dates: start: 20001004, end: 20040101
  9. PRAZOSIN HCL [Concomitant]
     Dates: start: 20040101, end: 20040101
  10. VENTOLIN [Concomitant]
  11. METOCLOPRAMIDE [Concomitant]
  12. OXYBUTYNIN CHLORIDE [Concomitant]
     Indication: INCONTINENCE
  13. ACETAMINOPHEN [Concomitant]

REACTIONS (13)
  - AGGRESSION [None]
  - AGORAPHOBIA [None]
  - BLINDNESS [None]
  - CLAUSTROPHOBIA [None]
  - DRUG WITHDRAWAL SYNDROME [None]
  - FEAR [None]
  - NERVOUSNESS [None]
  - PARANOIA [None]
  - SENSORY DISTURBANCE [None]
  - SUICIDAL IDEATION [None]
  - SUICIDE ATTEMPT [None]
  - TREMOR [None]
  - WITHDRAWAL SYNDROME [None]
